FAERS Safety Report 18148125 (Version 2)
Quarter: 2020Q3

REPORT INFORMATION
  Report Type: Spontaneous
  Country: US (occurrence: US)
  Receive Date: 20200813
  Receipt Date: 20200902
  Transmission Date: 20201103
  Serious: No
  Sender: FDA-Public Use
  Company Number: US-TEVA-2020-US-1815297

PATIENT
  Age: 72 Year
  Sex: Female

DRUGS (3)
  1. VENLAFAXINE [Suspect]
     Active Substance: VENLAFAXINE HYDROCHLORIDE
     Indication: ANXIETY
     Dosage: ONE CAPSULE BY MOUTH ONCE DAILY
     Route: 048
  2. VENLAFAXINE [Suspect]
     Active Substance: VENLAFAXINE HYDROCHLORIDE
     Indication: DEPRESSION
  3. CLARINEX [Concomitant]
     Active Substance: DESLORATADINE

REACTIONS (4)
  - Malaise [Unknown]
  - Drug ineffective [Unknown]
  - Product substitution issue [Unknown]
  - Panic attack [Unknown]
